FAERS Safety Report 4464808-9 (Version None)
Quarter: 2004Q3

REPORT INFORMATION
  Report Type: 
  Country: None (occurrence: None)
  Receive Date: 20040928
  Receipt Date: 20040928
  Transmission Date: 20050211
  Serious: No
  Sender: FDA-Public Use
  Company Number: None

PATIENT
  Age: 62 Year
  Sex: Female

DRUGS (2)
  1. ANCEF [Suspect]
  2. METHYLENE BLUE [Suspect]

REACTIONS (2)
  - HAEMODYNAMIC INSTABILITY [None]
  - HYPOTENSION [None]
